FAERS Safety Report 8713419 (Version 3)
Quarter: 2012Q4

REPORT INFORMATION
  Report Type: 
  Country: JP (occurrence: JP)
  Receive Date: 20120808
  Receipt Date: 20120918
  Transmission Date: 20130627
  Serious: Yes (Hospitalization)
  Sender: FDA-Public Use
  Company Number: JP-GLAXOSMITHKLINE-B0820845A

PATIENT
  Age: 77 Year
  Sex: Female
  Weight: 43 kg

DRUGS (12)
  1. VALTREX [Suspect]
     Indication: HERPES ZOSTER
     Dosage: 1000MG Three times per day
     Route: 048
     Dates: start: 20120731, end: 20120803
  2. ACYCRIL [Concomitant]
     Indication: HERPES ZOSTER
     Route: 042
     Dates: start: 20120731, end: 20120801
  3. UNISIA [Concomitant]
     Dosage: 1IUAX Per day
     Route: 048
     Dates: end: 20120803
  4. TRYPTANOL [Concomitant]
     Dosage: 10MG Per day
     Route: 048
     Dates: end: 20120803
  5. ATORVASTATIN [Concomitant]
     Dosage: 5MG Per day
     Route: 048
     Dates: end: 20120803
  6. URITOS [Concomitant]
     Dosage: .1MG Twice per day
     Route: 048
     Dates: end: 20120803
  7. MINODRONIC ACID [Concomitant]
     Dosage: 50MG Per day
     Route: 048
     Dates: end: 20120803
  8. ALLEGRA [Concomitant]
     Route: 048
     Dates: end: 20120803
  9. EPADEL [Concomitant]
     Route: 048
     Dates: end: 20120803
  10. LOXONIN [Concomitant]
     Route: 065
  11. MUCOSTA [Concomitant]
     Route: 065
  12. ARASENA-A [Concomitant]
     Route: 061

REACTIONS (12)
  - Altered state of consciousness [Recovered/Resolved]
  - Renal disorder [Recovered/Resolved]
  - Dehydration [Unknown]
  - Heat illness [Unknown]
  - Drug level increased [Unknown]
  - Dizziness [Unknown]
  - Decreased appetite [Unknown]
  - Vomiting [Unknown]
  - Gait disturbance [Unknown]
  - Blood urea increased [Unknown]
  - Blood creatinine increased [Unknown]
  - Hypophagia [Unknown]
